FAERS Safety Report 4900179-9 (Version None)
Quarter: 2006Q1

REPORT INFORMATION
  Report Type: 
  Country: None (occurrence: None)
  Receive Date: 20060203
  Receipt Date: 20050607
  Transmission Date: 20060701
  Serious: No
  Sender: FDA-Public Use
  Company Number: US-GLAXOSMITHKLINE-A0561604A

PATIENT
  Age: 62 Year
  Sex: Male

DRUGS (7)
  1. ARIXTRA [Suspect]
     Dosage: 2.5MG PER DAY
     Route: 058
     Dates: start: 20050526
  2. AMERGE [Concomitant]
  3. CYPROHEPTADINE HCL [Concomitant]
  4. XANAX [Concomitant]
  5. AMBIEN [Concomitant]
  6. NU-IRON [Concomitant]
  7. LORTAB [Concomitant]

REACTIONS (2)
  - PRURITUS [None]
  - RASH GENERALISED [None]
